FAERS Safety Report 10721445 (Version 2)
Quarter: 2015Q1

REPORT INFORMATION
  Report Type: Spontaneous
  Country: BR (occurrence: BR)
  Receive Date: 20150119
  Receipt Date: 20150121
  Transmission Date: 20150721
  Serious: Yes (Other)
  Sender: FDA-Public Use
  Company Number: BR-SA-2015SA004552

PATIENT
  Age: 43 Year
  Sex: Female

DRUGS (1)
  1. ENOXAPARIN SODIUM. [Suspect]
     Active Substance: ENOXAPARIN SODIUM
     Indication: SURGERY
     Dosage: DOSE- 1 SYRINGE, FORM- SYRINGE
     Route: 058

REACTIONS (3)
  - Injection site reaction [Unknown]
  - Injection site cellulitis [Unknown]
  - Injection site oedema [Unknown]
